FAERS Safety Report 7261881-X (Version None)
Quarter: 2011Q1

REPORT INFORMATION
  Report Type: 
  Country: None (occurrence: None)
  Receive Date: 20110130
  Receipt Date: 20101210
  Transmission Date: 20110831
  Serious: No
  Sender: FDA-Public Use
  Company Number: US-ABBOTT-10P-163-0691093-00

PATIENT
  Sex: Female

DRUGS (1)
  1. HUMIRA [Suspect]
     Indication: RHEUMATOID ARTHRITIS
     Route: 058
     Dates: start: 20100401, end: 20101001

REACTIONS (5)
  - OEDEMA PERIPHERAL [None]
  - MUSCULOSKELETAL STIFFNESS [None]
  - FATIGUE [None]
  - DRUG INEFFECTIVE [None]
  - PAIN IN EXTREMITY [None]
